FAERS Safety Report 8017573-2 (Version None)
Quarter: 2011Q4

REPORT INFORMATION
  Report Type: 
  Country: None (occurrence: None)
  Receive Date: 20111229
  Receipt Date: 20111229
  Transmission Date: 20120403
  Serious: Yes (Hospitalization)
  Sender: FDA-Public Use
  Company Number: None

PATIENT
  Age: 93 Year
  Sex: Female
  Weight: 49.9 kg

DRUGS (9)
  1. MIRALAX [Concomitant]
  2. LASIX [Concomitant]
  3. PROTONIX [Concomitant]
  4. CARAFATE [Concomitant]
  5. COUMADIN [Suspect]
     Indication: ATRIAL FIBRILLATION
     Dosage: 4MG TUE + F PO CHRONIC
     Route: 048
  6. COREG [Concomitant]
  7. POTASSIUM CHLORIDE [Concomitant]
  8. BENICAR [Concomitant]
  9. VICODIN [Concomitant]

REACTIONS (4)
  - ABDOMINAL PAIN [None]
  - CARDIAC FAILURE CONGESTIVE [None]
  - HAEMORRHOIDAL HAEMORRHAGE [None]
  - ACQUIRED OESOPHAGEAL WEB [None]
